FAERS Safety Report 7346902-8 (Version None)
Quarter: 2011Q1

REPORT INFORMATION
  Report Type: 
  Country: None (occurrence: None)
  Receive Date: 20110311
  Receipt Date: 20110304
  Transmission Date: 20110831
  Serious: Yes (Hospitalization)
  Sender: FDA-Public Use
  Company Number: KR-ELI_LILLY_AND_COMPANY-KR201103001288

PATIENT
  Sex: Female
  Weight: 67 kg

DRUGS (8)
  1. EXENATIDE [Suspect]
     Indication: TYPE 2 DIABETES MELLITUS
     Dosage: 5 UG, UNKNOWN
     Route: 065
     Dates: start: 20090730
  2. THIOCTACID [Concomitant]
     Dates: start: 20050816
  3. DILATREND [Concomitant]
     Dates: start: 20090812
  4. CRESTOR [Concomitant]
     Dates: start: 20060404
  5. SENSIVAL [Concomitant]
     Dates: start: 20050816
  6. LASIX [Concomitant]
     Dates: start: 20090812
  7. ASPIRIN [Concomitant]
     Dates: start: 20050523
  8. NOVOMIX30 [Concomitant]
     Dates: start: 20050509

REACTIONS (2)
  - NAUSEA [None]
  - VERTIGO [None]
